FAERS Safety Report 6099210-X (Version None)
Quarter: 2009Q1

REPORT INFORMATION
  Report Type: 
  Country: None (occurrence: None)
  Receive Date: 20090225
  Receipt Date: 20090225
  Transmission Date: 20090719
  Serious: Yes (Hospitalization)
  Sender: FDA-Public Use
  Company Number: None

PATIENT
  Age: 75 Year
  Sex: Female
  Weight: 55 kg

DRUGS (1)
  1. ENALAPRIL MALEATE [Suspect]
     Dosage: 2.5MG DAILY PO
     Route: 048

REACTIONS (1)
  - PANCREATITIS [None]
